FAERS Safety Report 21289465 (Version 1)
Quarter: 2022Q3

REPORT INFORMATION
  Report Type: Report from Study
  Country: US (occurrence: US)
  Receive Date: 20220902
  Receipt Date: 20220902
  Transmission Date: 20221027
  Serious: Yes (Hospitalization, Other)
  Sender: FDA-Public Use
  Company Number: US-TAKEDA-US201820094

PATIENT
  Age: 57 Year
  Sex: Female
  Weight: 47.2 kg

DRUGS (12)
  1. TEDUGLUTIDE [Suspect]
     Active Substance: TEDUGLUTIDE
     Indication: Short-bowel syndrome
     Dosage: 2.32 MILLIGRAM, QD
     Route: 042
     Dates: start: 20170214, end: 20170803
  2. TEDUGLUTIDE [Suspect]
     Active Substance: TEDUGLUTIDE
     Indication: Short-bowel syndrome
     Dosage: 2.32 MILLIGRAM, QD
     Route: 042
     Dates: start: 20170214, end: 20170803
  3. TEDUGLUTIDE [Suspect]
     Active Substance: TEDUGLUTIDE
     Indication: Short-bowel syndrome
     Dosage: 2.32 MILLIGRAM, QD
     Route: 042
     Dates: start: 20170214, end: 20170803
  4. TEDUGLUTIDE [Suspect]
     Active Substance: TEDUGLUTIDE
     Indication: Short-bowel syndrome
     Dosage: 2.32 MILLIGRAM, QD
     Route: 042
     Dates: start: 20170214, end: 20170803
  5. TEDUGLUTIDE [Suspect]
     Active Substance: TEDUGLUTIDE
     Dosage: 2.32 MILLIGRAM, QD
     Route: 042
     Dates: start: 20170807, end: 202002
  6. TEDUGLUTIDE [Suspect]
     Active Substance: TEDUGLUTIDE
     Dosage: 2.32 MILLIGRAM, QD
     Route: 042
     Dates: start: 20170807, end: 202002
  7. TEDUGLUTIDE [Suspect]
     Active Substance: TEDUGLUTIDE
     Dosage: 2.32 MILLIGRAM, QD
     Route: 042
     Dates: start: 20170807, end: 202002
  8. TEDUGLUTIDE [Suspect]
     Active Substance: TEDUGLUTIDE
     Dosage: 2.32 MILLIGRAM, QD
     Route: 042
     Dates: start: 20170807, end: 202002
  9. HYDROCORTISONE [Concomitant]
     Active Substance: HYDROCORTISONE
     Indication: Eczema
     Dosage: UNK
     Dates: start: 20170516, end: 20170523
  10. ZINC OXIDE [Concomitant]
     Active Substance: ZINC OXIDE
     Indication: Eczema
     Dosage: UNK
     Dates: start: 20170620
  11. OMEPRAZOLE [Concomitant]
     Active Substance: OMEPRAZOLE
     Indication: Gastrooesophageal reflux disease
     Dosage: UNK
     Dates: start: 20170214
  12. NICOTINE POLACRILEX [Concomitant]
     Active Substance: NICOTINE
     Indication: Smoking cessation therapy
     Dosage: UNK
     Dates: start: 20161229, end: 20170112

REACTIONS (1)
  - Bacteraemia [Recovered/Resolved]

NARRATIVE: CASE EVENT DATE: 20170803
